FAERS Safety Report 25318741 (Version 1)
Quarter: 2025Q2

REPORT INFORMATION
  Report Type: Spontaneous
  Country: PL (occurrence: PL)
  Receive Date: 20250515
  Receipt Date: 20250515
  Transmission Date: 20250716
  Serious: Yes (Other)
  Sender: TEVA
  Company Number: PL-TEVA-VS-3330587

PATIENT
  Age: 42 Year
  Sex: Male

DRUGS (4)
  1. SIMVASTATIN [Interacting]
     Active Substance: SIMVASTATIN
     Indication: Product used for unknown indication
     Route: 065
  2. INDAPAMIDE [Concomitant]
     Active Substance: INDAPAMIDE
     Indication: Product used for unknown indication
     Route: 065
  3. SEMAGLUTIDE [Interacting]
     Active Substance: SEMAGLUTIDE
     Indication: Weight control
     Route: 065
  4. TELMISARTAN [Concomitant]
     Active Substance: TELMISARTAN
     Indication: Product used for unknown indication
     Route: 065

REACTIONS (2)
  - Pancreatitis acute [Unknown]
  - Drug interaction [Unknown]
